FAERS Safety Report 12920488 (Version 6)
Quarter: 2021Q2

REPORT INFORMATION
  Report Type: Report from Study
  Country: JP (occurrence: JP)
  Receive Date: 20161108
  Receipt Date: 20210426
  Transmission Date: 20210716
  Serious: Yes (Death, Hospitalization, Other)
  Sender: FDA-Public Use
  Company Number: JP-INCYTE CORPORATION-2016IN006963

PATIENT

DRUGS (18)
  1. JAKAVI [Suspect]
     Active Substance: RUXOLITINIB
     Dosage: 10 MG, BID
     Route: 048
     Dates: start: 20161117, end: 20171225
  2. HYDREA [Suspect]
     Active Substance: HYDROXYUREA
     Dosage: 1000 MG
     Route: 048
     Dates: start: 20171221, end: 20180130
  3. HYDREA [Suspect]
     Active Substance: HYDROXYUREA
     Indication: PRIMARY MYELOFIBROSIS
     Dosage: 500 MG
     Route: 048
     Dates: start: 20171215, end: 20171220
  4. HYDREA [Suspect]
     Active Substance: HYDROXYUREA
     Dosage: 500 MG
     Route: 048
     Dates: start: 20180405, end: 20180426
  5. JAKAVI [Suspect]
     Active Substance: RUXOLITINIB
     Dosage: 25 MG, BID
     Route: 048
     Dates: start: 20160608, end: 20161016
  6. VANCOMYCIN [Suspect]
     Active Substance: VANCOMYCIN
     Indication: PNEUMONIA
     Dosage: 3 G
     Route: 065
     Dates: start: 20161109, end: 20161117
  7. RED BLOOD CELLS, CONCENTRATED [Concomitant]
     Active Substance: HUMAN RED BLOOD CELL
     Indication: PRIMARY MYELOFIBROSIS
     Dosage: 2 IU
     Route: 041
     Dates: start: 20161122, end: 20161122
  8. JAKAVI [Suspect]
     Active Substance: RUXOLITINIB
     Indication: PRIMARY MYELOFIBROSIS
     Dosage: 5 MG, BID
     Route: 048
     Dates: start: 20151209, end: 20151224
  9. JAKAVI [Suspect]
     Active Substance: RUXOLITINIB
     Dosage: 20 MG, BID
     Route: 048
     Dates: start: 20160316, end: 20160607
  10. RED BLOOD CELLS, CONCENTRATED [Concomitant]
     Active Substance: HUMAN RED BLOOD CELL
     Dosage: 2 IU, TOTAOL 15 TIMES
     Route: 041
     Dates: start: 20171225, end: 20180426
  11. RED BLOOD CELLS, CONCENTRATED [Concomitant]
     Active Substance: HUMAN RED BLOOD CELL
     Dosage: 4 IU
     Route: 041
     Dates: start: 20180315, end: 20180405
  12. JAKAVI [Suspect]
     Active Substance: RUXOLITINIB
     Dosage: 10 MG, BID
     Route: 048
     Dates: start: 20151225, end: 20160216
  13. RED BLOOD CELLS, CONCENTRATED [Concomitant]
     Active Substance: HUMAN RED BLOOD CELL
     Dosage: 2 IU
     Route: 041
     Dates: start: 20161222, end: 20161222
  14. PLATELETS [Concomitant]
     Active Substance: HUMAN PLATELET, ALLOGENIC
     Indication: PRIMARY MYELOFIBROSIS
     Dosage: 10 IU,2 TIMES
     Route: 041
     Dates: start: 20180208, end: 20180213
  15. JAKAVI [Suspect]
     Active Substance: RUXOLITINIB
     Dosage: 15 MG, BID
     Route: 048
     Dates: start: 20160217, end: 20160315
  16. HYDREA [Suspect]
     Active Substance: HYDROXYUREA
     Dosage: 5000 MG, (1000MG 3TIMES, 500MG 4TIMES)
     Route: 048
     Dates: start: 20180131, end: 20180207
  17. FINIBAX [Suspect]
     Active Substance: DORIPENEM MONOHYDRATE
     Indication: PNEUMONIA
     Dosage: 1.5 MG
     Route: 065
     Dates: start: 20161109, end: 20161117
  18. FLUCONAZOLE. [Concomitant]
     Active Substance: FLUCONAZOLE
     Indication: OPPORTUNISTIC INFECTION PROPHYLAXIS
     Dosage: 100 MG
     Route: 048
     Dates: start: 20161108, end: 20171229

REACTIONS (14)
  - Primary myelofibrosis [Fatal]
  - Splenomegaly [Not Recovered/Not Resolved]
  - Pneumonia [Recovering/Resolving]
  - Pneumonia [Recovered/Resolved]
  - Malignant neoplasm progression [Fatal]
  - Pulmonary hypertension [Recovering/Resolving]
  - Anaemia [Not Recovered/Not Resolved]
  - Platelet count decreased [Recovering/Resolving]
  - Respiratory failure [Recovering/Resolving]
  - Myelosuppression [Recovering/Resolving]
  - Hepatic function abnormal [Recovered/Resolved]
  - Pain in extremity [Unknown]
  - Blood lactate dehydrogenase increased [Unknown]
  - Hepatic function abnormal [Recovered/Resolved]

NARRATIVE: CASE EVENT DATE: 20160608
